FAERS Safety Report 12185787 (Version 1)
Quarter: 2016Q1

REPORT INFORMATION
  Report Type: Report from Study
  Country: SE (occurrence: SE)
  Receive Date: 20160316
  Receipt Date: 20160316
  Transmission Date: 20160526
  Serious: Yes (Other)
  Sender: FDA-Public Use
  Company Number: SE-AMGEN-SWECT2015126766

PATIENT
  Age: 42 Year
  Sex: Female

DRUGS (2)
  1. CALCICHEW D3 [Concomitant]
     Active Substance: CALCIUM\CHOLECALCIFEROL
     Dosage: 500 MG, QD
     Route: 048
     Dates: start: 20100416
  2. DENOSUMAB [Suspect]
     Active Substance: DENOSUMAB
     Indication: BONE GIANT CELL TUMOUR
     Dosage: 120 MG, Q4WK
     Route: 058
     Dates: start: 20100416

REACTIONS (1)
  - Pubis fracture [Not Recovered/Not Resolved]

NARRATIVE: CASE EVENT DATE: 20151026
